FAERS Safety Report 8225207-7 (Version None)
Quarter: 2012Q1

REPORT INFORMATION
  Report Type: 
  Country: None (occurrence: None)
  Receive Date: 20120321
  Receipt Date: 20120316
  Transmission Date: 20120608
  Serious: Yes (Other)
  Sender: FDA-Public Use
  Company Number: US-MERCK-1203USA02334

PATIENT
  Sex: Female

DRUGS (3)
  1. BONIVA [Suspect]
     Route: 065
     Dates: start: 20080901, end: 20100301
  2. FOSAMAX [Suspect]
     Route: 048
     Dates: start: 19970101, end: 20080101
  3. FOSAMAX [Suspect]
     Route: 048
     Dates: start: 20080301, end: 20080901

REACTIONS (2)
  - FEMUR FRACTURE [None]
  - LOW TURNOVER OSTEOPATHY [None]
